FAERS Safety Report 9769585 (Version 2)
Quarter: 2014Q2

REPORT INFORMATION
  Report Type: Spontaneous
  Country: US (occurrence: US)
  Receive Date: 20131218
  Receipt Date: 20140623
  Transmission Date: 20141212
  Serious: No
  Sender: FDA-Public Use
  Company Number: US-SHIONOGI, INC-2013000356

PATIENT
  Age: 61 Year
  Sex: Female
  Weight: 53.06 kg

DRUGS (5)
  1. OSPHENA [Suspect]
     Indication: DYSPAREUNIA
     Dosage: 60 MG, QD
     Route: 048
     Dates: start: 20131113, end: 2013
  2. OSPHENA [Suspect]
     Indication: VULVOVAGINAL PAIN
     Dosage: 60 MG, UNK
  3. PREMARIN [Concomitant]
     Indication: VULVOVAGINAL DRYNESS
     Dosage: 1 G
     Route: 067
  4. KLONOPIN [Concomitant]
     Indication: ANXIETY DISORDER
     Dosage: UNK
     Route: 065
  5. ACTONEL [Concomitant]
     Indication: OSTEOPOROSIS
     Dosage: UNK

REACTIONS (1)
  - Swollen tongue [Recovered/Resolved]
